FAERS Safety Report 10362571 (Version 1)
Quarter: 2014Q3

REPORT INFORMATION
  Report Type: Spontaneous
  Country: US (occurrence: None)
  Receive Date: 20140804
  Receipt Date: 20140804
  Transmission Date: 20150326
  Serious: Yes (Life-Threatening)
  Sender: FDA-Public Use
  Company Number: None

PATIENT
  Age: 66 Year
  Sex: Male
  Weight: 54 kg

DRUGS (4)
  1. CORDARONE [Suspect]
     Active Substance: AMIODARONE HYDROCHLORIDE
     Indication: ATRIAL FIBRILLATION
     Dosage: 1 MG, MINUTE, INTRAVENOUS DRIP
     Route: 041
     Dates: start: 20020121, end: 20020121
  2. DIGOXIN IV [Concomitant]
  3. LORAZEPAM. [Concomitant]
     Active Substance: LORAZEPAM
  4. ENTERIC COATED ASA [Concomitant]

REACTIONS (1)
  - Cardiac arrest [None]

NARRATIVE: CASE EVENT DATE: 20020122
